FAERS Safety Report 8185371-5 (Version None)
Quarter: 2012Q1

REPORT INFORMATION
  Report Type: 
  Country: None (occurrence: None)
  Receive Date: 20120305
  Receipt Date: 20120220
  Transmission Date: 20120608
  Serious: Yes (Death, Hospitalization)
  Sender: FDA-Public Use
  Company Number: US-ROCHE-1044661

PATIENT
  Sex: Male

DRUGS (8)
  1. ALTEPLASE [Suspect]
     Indication: PRODUCT USED FOR UNKNOWN INDICATION
     Route: 042
  2. INSULIN [Concomitant]
  3. HEPARIN [Suspect]
     Indication: ISCHAEMIC STROKE
     Route: 042
  4. ASPIRIN [Suspect]
     Indication: ISCHAEMIC STROKE
  5. TIROFIBAN [Suspect]
     Indication: ISCHAEMIC STROKE
  6. CLOPIDOGREL [Suspect]
     Indication: ISCHAEMIC STROKE
  7. LISINOPRIL [Concomitant]
  8. GEMFIBROZIL [Concomitant]

REACTIONS (6)
  - INTRAVENTRICULAR HAEMORRHAGE [None]
  - HEMIPARESIS [None]
  - APHASIA [None]
  - CEREBRAL HAEMORRHAGE [None]
  - UNRESPONSIVE TO STIMULI [None]
  - HAEMORRHAGIC TRANSFORMATION STROKE [None]
